FAERS Safety Report 5097450-X (Version None)
Quarter: 2006Q3

REPORT INFORMATION
  Report Type: 
  Country: None (occurrence: None)
  Receive Date: 20060901
  Receipt Date: 20060821
  Transmission Date: 20061208
  Serious: Yes (Hospitalization, Other)
  Sender: FDA-Public Use
  Company Number: HQWYE879120APR06

PATIENT
  Age: 27 Year
  Sex: Male
  Weight: 103.06 kg

DRUGS (17)
  1. RAPAMUNE [Suspect]
     Indication: PROPHYLAXIS AGAINST TRANSPLANT REJECTION
     Dosage: SEE IMAGE
     Route: 048
     Dates: start: 20060323, end: 20060409
  2. RAPAMUNE [Suspect]
     Indication: PROPHYLAXIS AGAINST TRANSPLANT REJECTION
     Dosage: SEE IMAGE
     Route: 048
     Dates: start: 20060410, end: 20060411
  3. RAPAMUNE [Suspect]
     Indication: PROPHYLAXIS AGAINST TRANSPLANT REJECTION
     Dosage: SEE IMAGE
     Route: 048
     Dates: start: 20060412, end: 20060417
  4. RAPAMUNE [Suspect]
     Indication: PROPHYLAXIS AGAINST TRANSPLANT REJECTION
     Dosage: SEE IMAGE
     Route: 048
     Dates: start: 20060418, end: 20060419
  5. RAPAMUNE [Suspect]
     Indication: PROPHYLAXIS AGAINST TRANSPLANT REJECTION
     Dosage: SEE IMAGE
     Route: 048
     Dates: start: 20060421
  6. CELLCEPT [Suspect]
     Indication: PROPHYLAXIS AGAINST TRANSPLANT REJECTION
     Dosage: 1000 MG 1X PER 12 HR, ORAL
     Route: 048
     Dates: start: 20060323
  7. PREDNISONE TAB [Suspect]
     Indication: PROPHYLAXIS AGAINST TRANSPLANT REJECTION
     Dosage: SEE IMAGE
     Route: 048
     Dates: start: 20060411, end: 20060411
  8. PREDNISONE TAB [Suspect]
     Indication: PROPHYLAXIS AGAINST TRANSPLANT REJECTION
     Dosage: SEE IMAGE
     Route: 048
     Dates: start: 20060412
  9. TOPROL-XL [Concomitant]
  10. MYCELEX [Concomitant]
  11. CLONIDINE [Concomitant]
  12. AXID [Concomitant]
  13. KEFLEX [Concomitant]
  14. FERROUS SULFATE TAB [Concomitant]
  15. BACTRIM [Concomitant]
  16. IBERET-FOLIC (FERROUS SULFATE/FOLIC ACID/VITAMIN NOS) [Concomitant]
  17. ZOVIRAX [Concomitant]

REACTIONS (14)
  - AORTIC CALCIFICATION [None]
  - AORTIC DILATATION [None]
  - ATRIAL FLUTTER [None]
  - BLOOD CREATININE INCREASED [None]
  - BLOOD UREA INCREASED [None]
  - CARDIAC ABLATION [None]
  - IMMUNOSUPPRESSANT DRUG LEVEL INCREASED [None]
  - ODYNOPHAGIA [None]
  - OESOPHAGEAL ULCER [None]
  - PERICARDIAL EFFUSION [None]
  - PLATELET COUNT DECREASED [None]
  - SUPRAVENTRICULAR TACHYCARDIA [None]
  - THERAPY NON-RESPONDER [None]
  - VENTRICULAR HYPERTROPHY [None]
